FAERS Safety Report 15294365 (Version 1)
Quarter: 2018Q3

REPORT INFORMATION
  Report Type: Spontaneous
  Country: FR (occurrence: FR)
  Receive Date: 20180820
  Receipt Date: 20180820
  Transmission Date: 20181010
  Serious: Yes (Other)
  Sender: FDA-Public Use
  Company Number: FR-LUNDBECK-DKLU2052974

PATIENT
  Age: 11 Month
  Sex: Male
  Weight: 9 kg

DRUGS (1)
  1. SABRILEX [Suspect]
     Active Substance: VIGABATRIN
     Indication: INFANTILE SPASMS
     Route: 048
     Dates: start: 20170712, end: 201712

REACTIONS (2)
  - Autism spectrum disorder [Recovering/Resolving]
  - Developmental delay [Recovering/Resolving]

NARRATIVE: CASE EVENT DATE: 201711
